FAERS Safety Report 7411864-1 (Version None)
Quarter: 2011Q2

REPORT INFORMATION
  Report Type: 
  Country: None (occurrence: None)
  Receive Date: 20110408
  Receipt Date: 20110408
  Transmission Date: 20111010
  Serious: Yes (Hospitalization)
  Sender: FDA-Public Use
  Company Number: None

PATIENT
  Age: 59 Year
  Sex: Male

DRUGS (1)
  1. MITOXANTRONE [Suspect]
     Dates: start: 20101211

REACTIONS (2)
  - FEBRILE NEUTROPENIA [None]
  - UROSEPSIS [None]
